FAERS Safety Report 6743868-6 (Version None)
Quarter: 2010Q2

REPORT INFORMATION
  Report Type: 
  Country: None (occurrence: None)
  Receive Date: 20100527
  Receipt Date: 20100405
  Transmission Date: 20101027
  Serious: No
  Sender: FDA-Public Use
  Company Number: US-KINGPHARMUSA00001-K201000401

PATIENT
  Sex: Female
  Weight: 59.864 kg

DRUGS (4)
  1. FLECTOR [Suspect]
     Dosage: 1 PATCH, BID
     Route: 061
     Dates: start: 20091101, end: 20090101
  2. CELEBREX [Concomitant]
     Indication: ARTHRITIS
     Dosage: UNK
  3. WARFARIN SODIUM [Concomitant]
     Indication: HEART RATE IRREGULAR
     Dosage: UNK
  4. ATENOLOL [Concomitant]
     Indication: HYPERTENSION
     Dosage: UNK

REACTIONS (1)
  - BLOOD PRESSURE INCREASED [None]
